FAERS Safety Report 13689110 (Version 1)
Quarter: 2017Q2

REPORT INFORMATION
  Report Type: Report from Study
  Country: PK (occurrence: PK)
  Receive Date: 20170626
  Receipt Date: 20170626
  Transmission Date: 20170830
  Serious: Yes (Other)
  Sender: FDA-Public Use
  Company Number: PK-INCYTE CORPORATION-2017IN004962

PATIENT

DRUGS (2)
  1. JAKAVI [Suspect]
     Active Substance: RUXOLITINIB
     Indication: PRODUCT USED FOR UNKNOWN INDICATION
     Dosage: 15 MG, BID
     Route: 048
     Dates: start: 20170509, end: 20170606
  2. JAKAVI [Suspect]
     Active Substance: RUXOLITINIB
     Dosage: 5 MG, BID
     Route: 048
     Dates: start: 20170613

REACTIONS (4)
  - Pigmentation disorder [Recovering/Resolving]
  - Swelling face [Recovering/Resolving]
  - Myelodysplastic syndrome [Unknown]
  - Myeloproliferative neoplasm [Unknown]

NARRATIVE: CASE EVENT DATE: 20170524
